FAERS Safety Report 12695606 (Version 1)
Quarter: 2016Q3

REPORT INFORMATION
  Report Type: Spontaneous
  Country: US (occurrence: US)
  Receive Date: 20160829
  Receipt Date: 20160829
  Transmission Date: 20161109
  Serious: No
  Sender: FDA-Public Use
  Company Number: US-KALEO, INC-2015SA216009

PATIENT
  Age: 62 Year
  Sex: Female

DRUGS (2)
  1. AUVI-Q [Suspect]
     Active Substance: EPINEPHRINE
     Indication: HYPERSENSITIVITY
     Dosage: ONCE IM OR SC
     Dates: start: 20151128
  2. BENADRYL [Suspect]
     Active Substance: DIPHENHYDRAMINE HYDROCHLORIDE
     Indication: HYPERSENSITIVITY
     Route: 048
     Dates: start: 20151128

REACTIONS (1)
  - Loss of consciousness [Unknown]

NARRATIVE: CASE EVENT DATE: 20151128
